FAERS Safety Report 6003609-7 (Version None)
Quarter: 2008Q4

REPORT INFORMATION
  Report Type: 
  Country: None (occurrence: None)
  Receive Date: 20081216
  Receipt Date: 20081205
  Transmission Date: 20090506
  Serious: Yes (Hospitalization, Other)
  Sender: FDA-Public Use
  Company Number: BR-PFIZER INC-2008151762

PATIENT

DRUGS (5)
  1. ATORVASTATIN CALCIUM [Suspect]
     Indication: DIABETES MELLITUS
     Dosage: UNIT DOSE: UNKNOWN; FREQUENCY: UNKNOW, UNKNOWN;
     Route: 048
     Dates: start: 20020101, end: 20060101
  2. LIPITOR [Suspect]
     Dosage: UNK
  3. LOSARTAN [Concomitant]
     Dosage: 50 MG, UNK
     Route: 065
  4. AAS [Concomitant]
     Dosage: 100 MG, UNK
     Route: 065
  5. ATENOLOL [Concomitant]
     Dosage: 50 MG, UNK
     Route: 065

REACTIONS (6)
  - APNOEA [None]
  - ARTERIAL OCCLUSIVE DISEASE [None]
  - CEREBROVASCULAR ACCIDENT [None]
  - FUNGAL INFECTION [None]
  - MYOCARDIAL INFARCTION [None]
  - SKIN LESION [None]
